FAERS Safety Report 9691399 (Version 2)
Quarter: 2013Q4

REPORT INFORMATION
  Report Type: Spontaneous
  Country: FR (occurrence: FR)
  Receive Date: 20131115
  Receipt Date: 20131206
  Transmission Date: 20140711
  Serious: Yes (Hospitalization)
  Sender: FDA-Public Use
  Company Number: FR-ROCHE-1301518

PATIENT
  Age: 65 Year
  Sex: Male

DRUGS (15)
  1. AVASTIN [Suspect]
     Indication: LUNG ADENOCARCINOMA
     Route: 042
     Dates: start: 20130305, end: 20130506
  2. AVASTIN [Suspect]
     Route: 042
     Dates: start: 20130527, end: 20130617
  3. AVASTIN [Suspect]
     Route: 042
     Dates: start: 20130709, end: 20130926
  4. AVASTIN [Suspect]
     Route: 042
     Dates: start: 20130926
  5. ALIMTA [Suspect]
     Indication: LUNG ADENOCARCINOMA
     Route: 042
     Dates: start: 20130305, end: 20130506
  6. ALIMTA [Suspect]
     Route: 042
     Dates: start: 20130527, end: 20130617
  7. ALIMTA [Suspect]
     Route: 042
     Dates: start: 20130926
  8. ALIMTA [Suspect]
     Route: 042
     Dates: start: 20130709, end: 20130926
  9. FOLINIC ACID [Concomitant]
     Route: 065
     Dates: start: 20130527
  10. FOLINIC ACID [Concomitant]
     Route: 065
  11. VITAMIN B12 [Concomitant]
     Dosage: 1 AMPOULE
     Route: 065
  12. CISPLATINE [Concomitant]
     Route: 065
     Dates: start: 20130305, end: 20130506
  13. CARBOPLATIN [Concomitant]
     Route: 065
     Dates: start: 20130527, end: 20130617
  14. IMUREL [Concomitant]
  15. FOLIC ACID [Concomitant]
     Dosage: DAILY
     Route: 065

REACTIONS (3)
  - Pancytopenia [Recovering/Resolving]
  - Erythema [Recovering/Resolving]
  - Oedema peripheral [Recovering/Resolving]
